FAERS Safety Report 21696072 (Version 2)
Quarter: 2022Q4

REPORT INFORMATION
  Report Type: Report from Study
  Country: ES (occurrence: None)
  Receive Date: 20221207
  Receipt Date: 20221227
  Transmission Date: 20230113
  Serious: Yes (Death, Hospitalization)
  Sender: FDA-Public Use
  Company Number: ES-Eisai Medical Research-EC-2022-129409

PATIENT
  Age: 34 Year
  Sex: Female
  Weight: 40 kg

DRUGS (6)
  1. ERIBULIN [Suspect]
     Active Substance: ERIBULIN
     Indication: HER2 positive breast cancer
     Route: 042
     Dates: start: 20221117, end: 20221117
  2. TRASTUZUMAB [Suspect]
     Active Substance: TRASTUZUMAB
     Indication: HER2 positive breast cancer
     Dosage: FREQUENCY UNKNOWN
     Route: 042
     Dates: start: 20221117, end: 20221117
  3. OMEPRAZOLE [Concomitant]
     Active Substance: OMEPRAZOLE
     Route: 048
  4. FUROSEMIDE [Concomitant]
     Active Substance: FUROSEMIDE
     Route: 048
  5. ALDACTONE [Concomitant]
     Active Substance: SPIRONOLACTONE
     Route: 048
     Dates: end: 20221130
  6. GOSERELIN [Concomitant]
     Active Substance: GOSERELIN
     Route: 030
     Dates: end: 20221130

REACTIONS (3)
  - Multiple organ dysfunction syndrome [Fatal]
  - Febrile neutropenia [Recovering/Resolving]
  - Mucosal inflammation [Recovering/Resolving]

NARRATIVE: CASE EVENT DATE: 20221125
